FAERS Safety Report 21396341 (Version 3)
Quarter: 2022Q4

REPORT INFORMATION
  Report Type: Spontaneous
  Country: JP (occurrence: JP)
  Receive Date: 20220930
  Receipt Date: 20221107
  Transmission Date: 20230113
  Serious: Yes (Other)
  Sender: FDA-Public Use
  Company Number: JP-NOVARTISPH-NVSJ2022JP098402

PATIENT
  Age: 62 Year
  Sex: Male

DRUGS (3)
  1. NEORAL [Suspect]
     Active Substance: CYCLOSPORINE
     Indication: Erythrodermic psoriasis
     Dosage: 200 MG
     Route: 048
     Dates: start: 201301, end: 201501
  2. NEORAL [Suspect]
     Active Substance: CYCLOSPORINE
     Dosage: 150 MG
     Route: 048
     Dates: start: 201501, end: 201711
  3. BETAMETHASONE BUTYRATE PROPIONATE [Suspect]
     Active Substance: BETAMETHASONE BUTYRATE PROPIONATE
     Indication: Erythrodermic psoriasis
     Dosage: MEAN 4.6 G/DAY
     Route: 062

REACTIONS (2)
  - Osteonecrosis [Recovering/Resolving]
  - Arthralgia [Unknown]

NARRATIVE: CASE EVENT DATE: 20210301
